FAERS Safety Report 9263250 (Version 1)
Quarter: 2013Q1

REPORT INFORMATION
  Report Type: Spontaneous
  Country: US (occurrence: None)
  Receive Date: 20121212
  Receipt Date: 20121212
  Transmission Date: 20140127
  Serious: No
  Sender: FDA-Public Use
  Company Number: 1210USA013760

PATIENT
  Age: 56 Year
  Sex: Female

DRUGS (1)
  1. VICTRELIS [Suspect]
     Route: 048
     Dates: start: 20120930

REACTIONS (4)
  - Nausea [None]
  - Pruritus [None]
  - Dry skin [None]
  - Dysgeusia [None]
